FAERS Safety Report 4735073-X (Version None)
Quarter: 2005Q3

REPORT INFORMATION
  Report Type: 
  Country: None (occurrence: None)
  Receive Date: 20050804
  Receipt Date: 20050719
  Transmission Date: 20060218
  Serious: Yes (Hospitalization)
  Sender: FDA-Public Use
  Company Number: US_0505117998

PATIENT
  Age: 38 Year
  Sex: Female
  Weight: 94 kg

DRUGS (15)
  1. ZYPREXA [Suspect]
     Indication: BIPOLAR DISORDER
     Dosage: 15 MG
     Dates: start: 19970101, end: 20040101
  2. CELEXA [Concomitant]
  3. ARICEPT (CONEPEZIL HYDROCHLORIDE) [Concomitant]
  4. DITROPAN/USA/ (OXYBUTYNIN) [Concomitant]
  5. SYMMETREL [Concomitant]
  6. ALTACE [Concomitant]
  7. ZANTAC [Concomitant]
  8. NIACIN [Concomitant]
  9. REBETOL [Concomitant]
  10. PEG-INTRON [Concomitant]
  11. TOPAMAX [Concomitant]
  12. SEREVENT [Concomitant]
  13. ALBUTEROL [Concomitant]
  14. TRAZODONE [Concomitant]
  15. PROLIXIN [Concomitant]

REACTIONS (5)
  - BLOOD CHOLESTEROL ABNORMAL [None]
  - CHOLELITHIASIS [None]
  - DIABETES MELLITUS [None]
  - HYPERTENSION [None]
  - OBESITY [None]
